FAERS Safety Report 9516246 (Version 1)
Quarter: 2013Q3

REPORT INFORMATION
  Report Type: Spontaneous
  Country: GB (occurrence: GB)
  Receive Date: 20130911
  Receipt Date: 20130911
  Transmission Date: 20140515
  Serious: Yes (Hospitalization)
  Sender: FDA-Public Use
  Company Number: PHHY2013GB096049

PATIENT
  Age: 80 Year
  Sex: Female

DRUGS (9)
  1. CO-AMOXICLAV [Suspect]
     Indication: LOWER RESPIRATORY TRACT INFECTION
     Dosage: 375 MG, TID
     Route: 048
     Dates: start: 20120319, end: 20120320
  2. ERYTHROMYCIN [Suspect]
     Indication: LOWER RESPIRATORY TRACT INFECTION
     Dosage: 250 MG, BID
     Route: 048
     Dates: start: 20120313, end: 20120319
  3. ASPIRIN [Concomitant]
     Dosage: 75 MG, QD
  4. FUROSEMIDE [Concomitant]
     Dosage: 40 MG, QD
  5. PRAVASTATIN [Concomitant]
     Dosage: 40 MG, QD
  6. EZETIMIBE [Concomitant]
     Dosage: 10 MG, QD
  7. PERINDOPRIL [Concomitant]
     Dosage: 4 MG, QD
  8. AMLODIPINE [Concomitant]
     Dosage: 5 MG, QD
  9. BENDROFLUMETHIAZIDE [Concomitant]
     Dosage: 2.5 MG, QD

REACTIONS (3)
  - Medication error [Unknown]
  - Rales [Unknown]
  - Treatment failure [Recovered/Resolved]
